FAERS Safety Report 7774962-9 (Version None)
Quarter: 2011Q3

REPORT INFORMATION
  Report Type: 
  Country: None (occurrence: None)
  Receive Date: 20110923
  Receipt Date: 20110916
  Transmission Date: 20111222
  Serious: Yes (Hospitalization)
  Sender: FDA-Public Use
  Company Number: PHHY2011FR78945

PATIENT
  Age: 17 Year
  Sex: Female
  Weight: 66 kg

DRUGS (1)
  1. VANCOMYCIN HCL [Suspect]
     Indication: ANTIBIOTIC PROPHYLAXIS
     Dosage: 1 G, QD (DILUTED IN 30 ML OF ISOTONIC SALINE SERUM)
     Route: 042
     Dates: start: 20110627, end: 20110627

REACTIONS (4)
  - ERYTHEMA [None]
  - TACHYCARDIA [None]
  - HYPOTENSION [None]
  - DYSPNOEA [None]
